FAERS Safety Report 5442988-6 (Version None)
Quarter: 2007Q3

REPORT INFORMATION
  Report Type: 
  Country: None (occurrence: None)
  Receive Date: 20070905
  Receipt Date: 20070827
  Transmission Date: 20080115
  Serious: Yes (Hospitalization, Other)
  Sender: FDA-Public Use
  Company Number: PHEH2007US05850

PATIENT
  Age: 54 Year
  Sex: Female

DRUGS (3)
  1. OTHER CHOLESTEROL AND TRIGLYCERIDE REDUCERS [Concomitant]
  2. ASPIRIN [Concomitant]
  3. ZELNORM [Suspect]
     Indication: IRRITABLE BOWEL SYNDROME
     Dosage: 6 MG, BID
     Route: 048
     Dates: start: 20050101, end: 20070330

REACTIONS (11)
  - ANXIETY [None]
  - BRONCHITIS [None]
  - CHEST PAIN [None]
  - CHEST X-RAY ABNORMAL [None]
  - COSTOCHONDRITIS [None]
  - DYSPNOEA [None]
  - FIBROMYALGIA [None]
  - GASTROINTESTINAL HAEMORRHAGE [None]
  - MIGRAINE [None]
  - PNEUMONIA [None]
  - TACHYCARDIA [None]
